FAERS Safety Report 10256572 (Version 1)
Quarter: 2014Q2

REPORT INFORMATION
  Report Type: Spontaneous
  Country: US (occurrence: US)
  Receive Date: 20140624
  Receipt Date: 20140624
  Transmission Date: 20141212
  Serious: No
  Sender: FDA-Public Use
  Company Number: US-ZOGENIX, INC.-2011ZX000397

PATIENT
  Age: 44 Year
  Sex: Female
  Weight: 57.2 kg

DRUGS (13)
  1. SUMAVEL DOSEPRO [Suspect]
     Indication: MIGRAINE
     Dates: start: 20110727, end: 20110727
  2. SUMAVEL DOSEPRO [Suspect]
  3. ZANTAC [Concomitant]
     Indication: PRODUCT USED FOR UNKNOWN INDICATION
     Route: 048
  4. AYGESTIN [Concomitant]
     Indication: HORMONE LEVEL ABNORMAL
  5. LUCRIN DEPO [Concomitant]
     Indication: HORMONE LEVEL ABNORMAL
  6. SYNTHROID [Concomitant]
     Indication: THYROID DISORDER
     Route: 048
  7. VICODIN [Concomitant]
     Indication: PAIN
     Route: 048
  8. VALIUM                             /00017001/ [Concomitant]
     Indication: ANXIETY
     Route: 048
  9. VIT B 12 [Concomitant]
     Indication: PRODUCT USED FOR UNKNOWN INDICATION
  10. MULTIVITAMIN                       /00097801/ [Concomitant]
     Indication: PRODUCT USED FOR UNKNOWN INDICATION
  11. FROVA [Concomitant]
     Indication: MIGRAINE
  12. LOPRESSOR [Concomitant]
     Indication: BLOOD PRESSURE
     Route: 048
  13. CALCIUM [Concomitant]
     Indication: CALCIUM DEFICIENCY
     Route: 048

REACTIONS (1)
  - Injection site pain [Recovered/Resolved]
